FAERS Safety Report 21074664 (Version 1)
Quarter: 2022Q3

REPORT INFORMATION
  Report Type: Spontaneous
  Country: US (occurrence: US)
  Receive Date: 20220713
  Receipt Date: 20220713
  Transmission Date: 20221027
  Serious: Yes (Death, Life-Threatening, Hospitalization, Other)
  Sender: FDA-Public Use
  Company Number: None

PATIENT
  Age: 68 Year
  Sex: Male

DRUGS (12)
  1. MYCOPHENOLATE MOFETIL [Suspect]
     Active Substance: MYCOPHENOLATE MOFETIL
     Indication: Immunosuppressant drug therapy
     Dosage: 250 MILLIGRAM, BID (EVERY 12 HOUR)
     Route: 048
     Dates: start: 202002
  2. TACROLIMUS [Suspect]
     Active Substance: TACROLIMUS
     Indication: Immunosuppressant drug therapy
     Dosage: 5 MILLIGRAM, OD (EVERY 24 HOUR)
     Route: 048
     Dates: start: 202002
  3. TACROLIMUS [Suspect]
     Active Substance: TACROLIMUS
     Dosage: 4 MILLIGRAM, OD (EVERY 24 HOUR)
     Route: 048
     Dates: start: 202003
  4. CYCLOSPORINE [Suspect]
     Active Substance: CYCLOSPORINE
     Indication: Immunosuppressant drug therapy
     Dosage: UNK
     Route: 065
     Dates: start: 2020
  5. METHYLPREDNISOLONE [Suspect]
     Active Substance: METHYLPREDNISOLONE
     Indication: Gout
     Dosage: UNK
     Route: 042
     Dates: start: 2020
  6. PREDNISONE [Suspect]
     Active Substance: PREDNISONE
     Indication: Immunosuppressant drug therapy
     Dosage: 7.5 MILLIGRAM, OD (EVERY 24 HOUR)
     Route: 048
     Dates: start: 2020
  7. PREDNISONE [Suspect]
     Active Substance: PREDNISONE
     Dosage: 10 MILLIGRAM, OD (EVERY 24 HOUR)
     Route: 048
     Dates: start: 202002
  8. AMIODARONE [Concomitant]
     Active Substance: AMIODARONE
     Indication: Product used for unknown indication
     Dosage: UNK
     Route: 065
  9. ATOVAQUONE [Concomitant]
     Active Substance: ATOVAQUONE
     Indication: Prophylaxis
     Dosage: UNK
     Route: 065
     Dates: start: 202003
  10. INSULIN NOS [Concomitant]
     Active Substance: INSULIN NOS
     Indication: Hyperglycaemia
     Dosage: UNK
     Route: 042
     Dates: start: 2020
  11. NYSTATIN [Concomitant]
     Active Substance: NYSTATIN
     Indication: Prophylaxis
     Dosage: UNK
     Route: 042
     Dates: start: 2020
  12. VALGANCICLOVIR [Concomitant]
     Active Substance: VALGANCICLOVIR
     Indication: Prophylaxis
     Dosage: UNK
     Route: 065
     Dates: start: 202003

REACTIONS (16)
  - Respiratory failure [Fatal]
  - Septic shock [Fatal]
  - Staphylococcal infection [Fatal]
  - Enterococcal infection [Fatal]
  - Vascular pseudoaneurysm [Fatal]
  - Condition aggravated [Fatal]
  - Klebsiella infection [Fatal]
  - Enterococcal infection [Fatal]
  - Chest wall abscess [Fatal]
  - Acute kidney injury [Fatal]
  - Encephalopathy [Fatal]
  - Morganella infection [Fatal]
  - Mucormycosis [Fatal]
  - Enterobacter infection [Fatal]
  - Wound infection bacterial [Fatal]
  - Cutaneous mucormycosis [Fatal]

NARRATIVE: CASE EVENT DATE: 20200101
